FAERS Safety Report 11894077 (Version 2)
Quarter: 2016Q3

REPORT INFORMATION
  Report Type: Spontaneous
  Country: FR (occurrence: FR)
  Receive Date: 20160107
  Receipt Date: 20160827
  Transmission Date: 20161109
  Serious: Yes (Hospitalization, Other)
  Sender: FDA-Public Use
  Company Number: FR-BRISTOL-MYERS SQUIBB COMPANY-B040397

PATIENT
  Age: 0 Day
  Sex: Male
  Weight: 3.2 kg

DRUGS (19)
  1. ZERIT [Suspect]
     Active Substance: STAVUDINE
     Indication: PRODUCT USED FOR UNKNOWN INDICATION
     Dosage: 60 MG, QD
     Route: 064
  2. CRIXIVAN [Suspect]
     Active Substance: INDINAVIR SULFATE
     Indication: PRODUCT USED FOR UNKNOWN INDICATION
     Dosage: UNK
     Route: 064
  3. LEXOMIL [Concomitant]
     Active Substance: BROMAZEPAM
     Indication: PRODUCT USED FOR UNKNOWN INDICATION
     Dosage: UNK
     Route: 064
  4. TITANOREINE [Concomitant]
     Active Substance: CARRAGEENAN\TITANIUM\ZINC
     Indication: PRODUCT USED FOR UNKNOWN INDICATION
     Dosage: UNK
     Route: 064
  5. OROKEN [Concomitant]
     Active Substance: CEFIXIME
     Indication: PRODUCT USED FOR UNKNOWN INDICATION
     Dosage: UNK
     Route: 064
  6. RETROVIR [Suspect]
     Active Substance: ZIDOVUDINE
     Indication: PROPHYLAXIS
     Dosage: 6 MG/KG, QD
     Route: 042
  7. RETROVIR [Suspect]
     Active Substance: ZIDOVUDINE
     Dosage: 8 MG/KG, QD
     Route: 048
  8. EPIVIR [Suspect]
     Active Substance: LAMIVUDINE
     Indication: PROPHYLAXIS
     Dosage: 4 MG/KG, QD
     Route: 048
  9. TARDYFERON [Concomitant]
     Active Substance: FERROUS SULFATE
     Indication: PRODUCT USED FOR UNKNOWN INDICATION
     Dosage: UNK
     Route: 064
  10. VIRACEPT [Concomitant]
     Active Substance: NELFINAVIR MESYLATE
     Indication: PRODUCT USED FOR UNKNOWN INDICATION
     Route: 065
  11. EPIVIR [Suspect]
     Active Substance: LAMIVUDINE
     Indication: PRODUCT USED FOR UNKNOWN INDICATION
     Dosage: UNK
     Route: 064
  12. RETROVIR [Suspect]
     Active Substance: ZIDOVUDINE
     Indication: PRODUCT USED FOR UNKNOWN INDICATION
     Dosage: 1 DF, UNK
     Route: 064
     Dates: end: 19980503
  13. ROHYPNOL [Concomitant]
     Active Substance: FLUNITRAZEPAM
     Indication: PRODUCT USED FOR UNKNOWN INDICATION
     Dosage: UNK
     Route: 064
  14. INVIRASE [Suspect]
     Active Substance: SAQUINAVIR MESYLATE
     Indication: PRODUCT USED FOR UNKNOWN INDICATION
     Dosage: UNK
     Route: 064
  15. VIRAMUNE [Suspect]
     Active Substance: NEVIRAPINE
     Indication: PRODUCT USED FOR UNKNOWN INDICATION
     Dosage: DOSE UNIT: TABLET  EXPOSURE INITIATED IN WEEK 24 OF GESTATION.
     Route: 064
  16. IMODIUM [Concomitant]
     Active Substance: LOPERAMIDE HYDROCHLORIDE
     Indication: PRODUCT USED FOR UNKNOWN INDICATION
     Dosage: UNK
     Route: 064
  17. CLAMOXYL [Concomitant]
     Active Substance: AMOXICILLIN\CLAVULANIC ACID
     Indication: PRODUCT USED FOR UNKNOWN INDICATION
     Dosage: 2 G, UNK
     Route: 064
     Dates: end: 20010503
  18. VIDEX [Suspect]
     Active Substance: DIDANOSINE
     Indication: PRODUCT USED FOR UNKNOWN INDICATION
     Dosage: 300 MG, QD
     Route: 064
     Dates: start: 199708, end: 19980503
  19. SALBUTAMOL [Concomitant]
     Active Substance: ALBUTEROL
     Indication: PRODUCT USED FOR UNKNOWN INDICATION
     Dosage: EXPOSURE INITIATD IN WEEK 32 OF GESTATION.
     Route: 064

REACTIONS (12)
  - Infection [Unknown]
  - Hypertriglyceridaemia [Not Recovered/Not Resolved]
  - Febrile convulsion [Unknown]
  - Agitation [Not Recovered/Not Resolved]
  - Hepatosplenomegaly [Unknown]
  - Blood lactic acid increased [Recovered/Resolved]
  - Splenomegaly [Unknown]
  - Rhinitis [Unknown]
  - Speech disorder [Not Recovered/Not Resolved]
  - Hypocalcaemia [Recovered/Resolved]
  - Cytomegalovirus infection [Unknown]
  - Foetal exposure during pregnancy [Recovered/Resolved]

NARRATIVE: CASE EVENT DATE: 19980503
